FAERS Safety Report 9166530 (Version 1)
Quarter: 2013Q1

REPORT INFORMATION
  Report Type: Spontaneous
  Country: GB (occurrence: GB)
  Receive Date: 20130315
  Receipt Date: 20130315
  Transmission Date: 20140127
  Serious: Yes (Other)
  Sender: FDA-Public Use
  Company Number: GB-ABBOTT-13X-167-1059342-00

PATIENT
  Age: 35 Year
  Sex: Female
  Weight: 59 kg

DRUGS (3)
  1. CLARITHROMYCIN [Suspect]
     Indication: ECZEMA WEEPING
     Dosage: CUMULATIVE DOSE TO 1ST RXN: 1000MG
     Route: 048
     Dates: start: 20130215, end: 20130220
  2. LORATADINE [Concomitant]
     Indication: PRODUCT USED FOR UNKNOWN INDICATION
  3. CERAZETTE [Concomitant]
     Indication: PRODUCT USED FOR UNKNOWN INDICATION

REACTIONS (11)
  - Palpitations [Recovering/Resolving]
  - Dysgeusia [Recovering/Resolving]
  - Somnolence [Recovered/Resolved]
  - Anxiety [Recovered/Resolved with Sequelae]
  - Headache [Recovered/Resolved]
  - Rhinorrhoea [Recovered/Resolved with Sequelae]
  - Insomnia [Recovering/Resolving]
  - Agitation [Unknown]
  - Fatigue [Unknown]
  - Nausea [Unknown]
  - Sensory disturbance [Unknown]
